FAERS Safety Report 18503997 (Version 8)
Quarter: 2022Q3

REPORT INFORMATION
  Report Type: Report from Study
  Country: US (occurrence: US)
  Receive Date: 20201113
  Receipt Date: 20220725
  Transmission Date: 20221026
  Serious: Yes (Other)
  Sender: FDA-Public Use
  Company Number: NVSC2020US300313

PATIENT
  Sex: Female
  Weight: 80.272 kg

DRUGS (6)
  1. TREPROSTINIL [Suspect]
     Active Substance: TREPROSTINIL
     Indication: Pulmonary arterial hypertension
     Dosage: 16 NG/KG/MIN, CONT
     Route: 042
     Dates: start: 20201030
  2. TREPROSTINIL [Suspect]
     Active Substance: TREPROSTINIL
     Dosage: 39 NG/KG/MIN, CONT
     Route: 042
  3. TREPROSTINIL [Suspect]
     Active Substance: TREPROSTINIL
     Dosage: 60 NG/KG/MIN, CONT
     Route: 042
  4. TREPROSTINIL [Suspect]
     Active Substance: TREPROSTINIL
     Dosage: 60 NG/KG/MIN, CONT
     Route: 042
  5. SILDENAFIL CITRATE [Concomitant]
     Active Substance: SILDENAFIL CITRATE
     Indication: Product used for unknown indication
     Dosage: UNK
     Route: 065
  6. OPSUMIT [Concomitant]
     Active Substance: MACITENTAN
     Indication: Product used for unknown indication
     Dosage: UNK
     Route: 065

REACTIONS (13)
  - Vascular device infection [Unknown]
  - Presyncope [Unknown]
  - Peripheral swelling [Unknown]
  - Joint swelling [Unknown]
  - Abdominal distension [Unknown]
  - Cough [Unknown]
  - Abdominal discomfort [Unknown]
  - Myalgia [Unknown]
  - Diarrhoea [Unknown]
  - Headache [Unknown]
  - Dyspnoea [Unknown]
  - Vomiting [Unknown]
  - Catheter site pruritus [Unknown]
